FAERS Safety Report 8161126-2 (Version None)
Quarter: 2012Q1

REPORT INFORMATION
  Report Type: 
  Country: None (occurrence: None)
  Receive Date: 20120224
  Receipt Date: 20120220
  Transmission Date: 20120608
  Serious: No
  Sender: FDA-Public Use
  Company Number: US-PFIZER INC-2012045653

PATIENT

DRUGS (6)
  1. ASPIRIN [Suspect]
     Dosage: UNK
  2. VICODIN [Suspect]
     Dosage: UNK
  3. AMIODARONE HCL [Suspect]
     Dosage: UNK
  4. CODEINE SULFATE [Suspect]
     Dosage: UNK
  5. FERROUS SULFATE TAB [Suspect]
     Dosage: UNK
  6. PERCOCET [Suspect]
     Dosage: UNK

REACTIONS (1)
  - DRUG HYPERSENSITIVITY [None]
